FAERS Safety Report 4735273-9 (Version None)
Quarter: 2005Q3

REPORT INFORMATION
  Report Type: 
  Country: None (occurrence: None)
  Receive Date: 20050803
  Receipt Date: 20050721
  Transmission Date: 20060218
  Serious: Yes (Other)
  Sender: FDA-Public Use
  Company Number: 2005106160

PATIENT
  Age: 43 Year
  Sex: Female
  Weight: 78.0187 kg

DRUGS (6)
  1. BEXTRA [Suspect]
     Indication: BACK PAIN
     Dosage: 20 MG (20 MG, 1 IN 1 D), ORAL
     Route: 048
     Dates: start: 20020701
  2. CELEBREX [Suspect]
     Indication: BACK PAIN
     Dosage: 1 D
     Dates: start: 20011101, end: 20011201
  3. THYROID TAB [Concomitant]
  4. DYAZIDE [Concomitant]
  5. FLEXERIL [Concomitant]
  6. ALBUTEROL SULFATE HFA [Concomitant]

REACTIONS (14)
  - BACK PAIN [None]
  - CARDIAC STRESS TEST ABNORMAL [None]
  - CHEST PAIN [None]
  - CORONARY ARTERY OCCLUSION [None]
  - ECHOCARDIOGRAM ABNORMAL [None]
  - EYE PAIN [None]
  - HEADACHE [None]
  - LOSS OF CONSCIOUSNESS [None]
  - MYOCARDIAL INFARCTION [None]
  - PAIN IN EXTREMITY [None]
  - PROCEDURAL COMPLICATION [None]
  - PRURITUS [None]
  - RASH [None]
  - URTICARIA [None]
